FAERS Safety Report 8760085 (Version 2)
Quarter: 2012Q4

REPORT INFORMATION
  Report Type: Report from Study
  Country: BR (occurrence: BR)
  Receive Date: 20120829
  Receipt Date: 20120912
  Transmission Date: 20130627
  Serious: Yes (Hospitalization)
  Sender: FDA-Public Use
  Company Number: BR-ABBOTT-12P-020-0972196-00

PATIENT
  Sex: Female
  Weight: 79 kg

DRUGS (2)
  1. HUMIRA [Suspect]
     Route: 058
     Dates: start: 20120404, end: 201206
  2. HUMIRA [Suspect]

REACTIONS (6)
  - Cough [Recovered/Resolved]
  - Influenza [Recovered/Resolved]
  - Dyspnoea [Recovering/Resolving]
  - Fatigue [Not Recovered/Not Resolved]
  - Chest discomfort [Recovering/Resolving]
  - Intervertebral disc protrusion [Recovering/Resolving]
